FAERS Safety Report 20921406 (Version 2)
Quarter: 2022Q2

REPORT INFORMATION
  Report Type: Other
  Country: None (occurrence: US)
  Receive Date: 20220606
  Receipt Date: 20220616
  Transmission Date: 20220720
  Serious: Yes (Other)
  Sender: FDA-Public Use
  Company Number: US-Mission Pharmacal Company-2129520

PATIENT
  Age: 32 Year
  Sex: Female

DRUGS (1)
  1. THIOLA EC [Suspect]
     Active Substance: TIOPRONIN
     Indication: Cystinuria
     Route: 048
     Dates: start: 20190920

REACTIONS (2)
  - Product dose omission issue [Unknown]
  - Abortion spontaneous [Unknown]
